FAERS Safety Report 6085947-5 (Version None)
Quarter: 2009Q1

REPORT INFORMATION
  Report Type: 
  Country: None (occurrence: None)
  Receive Date: 20090220
  Receipt Date: 20090213
  Transmission Date: 20090719
  Serious: Yes (Hospitalization)
  Sender: FDA-Public Use
  Company Number: US-ELI_LILLY_AND_COMPANY-US200902003708

PATIENT
  Sex: Female

DRUGS (15)
  1. HUMULIN N [Suspect]
  2. LISINOPRIL [Concomitant]
     Indication: HYPERTENSION
  3. ATENOLOL [Concomitant]
     Indication: HYPERTENSION
  4. HYDROCHLOROTHIAZIDE [Concomitant]
     Indication: HYPERTENSION
  5. SIMVASTATIN [Concomitant]
  6. SINGULAIR [Concomitant]
     Indication: ASTHMA
  7. CELEBREX [Concomitant]
     Indication: ARTHRITIS
  8. PREDNISONE TAB [Concomitant]
     Indication: RESPIRATORY DISORDER
  9. ACTOS [Concomitant]
     Indication: DIABETES MELLITUS
  10. METHOTREXATE [Concomitant]
     Indication: ARTHRITIS
  11. REQUIP [Concomitant]
     Indication: RESTLESS LEGS SYNDROME
     Dosage: 1 MG, UNK
  12. ACYCLOVIR [Concomitant]
     Indication: ORAL HERPES
     Dosage: 200 MG, UNK
  13. REGLAN [Concomitant]
     Indication: GASTROINTESTINAL DISORDER
  14. NEXIUM [Concomitant]
     Indication: GASTROINTESTINAL DISORDER
  15. VENLAFAXINE HCL [Concomitant]
     Indication: NERVOUSNESS

REACTIONS (4)
  - CERVICAL VERTEBRAL FRACTURE [None]
  - INTERVERTEBRAL DISC OPERATION [None]
  - SPONDYLITIS [None]
  - TOOTH DISORDER [None]
